FAERS Safety Report 17172445 (Version 3)
Quarter: 2020Q1

REPORT INFORMATION
  Report Type: Spontaneous
  Country: US (occurrence: US)
  Receive Date: 20191218
  Receipt Date: 20200213
  Transmission Date: 20200409
  Serious: Yes (Hospitalization)
  Sender: FDA-Public Use
  Company Number: US-CELGENEUS-USA-20191205932

PATIENT
  Sex: Male
  Weight: 121.22 kg

DRUGS (4)
  1. REVLIMID [Suspect]
     Active Substance: LENALIDOMIDE
     Indication: PLASMA CELL MYELOMA
     Dosage: 25 MILLIGRAM
     Route: 048
     Dates: start: 20180221
  2. REVLIMID [Suspect]
     Active Substance: LENALIDOMIDE
     Dosage: 10 MILLIGRAM
     Route: 048
     Dates: start: 201905, end: 20191213
  3. REVLIMID [Suspect]
     Active Substance: LENALIDOMIDE
     Dosage: 10 - 25 MG
     Route: 048
     Dates: start: 201903
  4. REVLIMID [Suspect]
     Active Substance: LENALIDOMIDE
     Dosage: 10 MILLIGRAM
     Route: 048
     Dates: start: 202001

REACTIONS (7)
  - Respiration abnormal [Not Recovered/Not Resolved]
  - Neuralgia [Recovered/Resolved]
  - Herpes zoster [Not Recovered/Not Resolved]
  - Pneumonia [Recovered/Resolved]
  - Transient ischaemic attack [Not Recovered/Not Resolved]
  - Pneumonitis [Not Recovered/Not Resolved]
  - Influenza [Recovered/Resolved]
